FAERS Safety Report 13660152 (Version 1)
Quarter: 2017Q2

REPORT INFORMATION
  Report Type: Report from Study
  Country: CO (occurrence: CO)
  Receive Date: 20170616
  Receipt Date: 20170616
  Transmission Date: 20170830
  Serious: Yes (Death, Hospitalization)
  Sender: FDA-Public Use
  Company Number: PHHY2017CO073031

PATIENT
  Age: 69 Year
  Sex: Male
  Weight: 69 kg

DRUGS (2)
  1. VOTRIENT [Suspect]
     Active Substance: PAZOPANIB HYDROCHLORIDE
     Indication: RENAL CELL CARCINOMA
     Dosage: 400 MG, BID
     Route: 048
     Dates: start: 20170303
  2. FUROSEMIDE. [Concomitant]
     Active Substance: FUROSEMIDE
     Indication: PRODUCT USED FOR UNKNOWN INDICATION
     Dosage: UNK
     Route: 065

REACTIONS (15)
  - Cardiac failure [Unknown]
  - Gastric haemorrhage [Unknown]
  - Blood sodium abnormal [Unknown]
  - Peripheral swelling [Unknown]
  - Erythema [Unknown]
  - Oropharyngeal pain [Unknown]
  - Back pain [Unknown]
  - Eating disorder [Unknown]
  - Death [Fatal]
  - Vital functions abnormal [Unknown]
  - Hiccups [Unknown]
  - Dyschezia [Unknown]
  - Fluid retention [Unknown]
  - Dysuria [Unknown]
  - Hepatomegaly [Unknown]

NARRATIVE: CASE EVENT DATE: 20170515
